FAERS Safety Report 7093366-8 (Version None)
Quarter: 2010Q4

REPORT INFORMATION
  Report Type: 
  Country: None (occurrence: None)
  Receive Date: 20101110
  Receipt Date: 20101027
  Transmission Date: 20110411
  Serious: Yes (Hospitalization)
  Sender: FDA-Public Use
  Company Number: US-RB-014743-10

PATIENT
  Age: 77 Year
  Sex: Female

DRUGS (1)
  1. MUCINEX D [Suspect]
     Indication: SINUSITIS
     Dosage: TOOK WHATEVER THE BOX SAID AS DOSAGE EVER 12 HOURS
     Route: 048

REACTIONS (2)
  - DIARRHOEA [None]
  - INCORRECT DRUG ADMINISTRATION DURATION [None]
